FAERS Safety Report 7744314 (Version 3)
Quarter: 2013Q2

REPORT INFORMATION
  Report Type: Spontaneous
  Country: US (occurrence: US)
  Receive Date: 20101230
  Receipt Date: 20130423
  Transmission Date: 20140414
  Serious: Yes (Life-Threatening, Hospitalization)
  Sender: FDA-Public Use
  Company Number: US-BAYER-2010-008653

PATIENT
  Age: 22 Year
  Sex: Female
  Weight: 53 kg

DRUGS (8)
  1. YASMIN [Suspect]
     Indication: ACNE
  2. YASMIN [Suspect]
     Indication: CONTRACEPTION
  3. YAZ [Suspect]
     Indication: CONTRACEPTION
  4. TRAMADOL [Concomitant]
     Indication: BACK PAIN
     Dosage: 100 MG, QD
  5. MOTRIN [Concomitant]
     Indication: BACK PAIN
     Dosage: UNK
  6. ADVIL [Concomitant]
     Indication: BACK PAIN
     Dosage: UNK
  7. TRADOL [Concomitant]
     Indication: URINARY TRACT INFECTION
     Dosage: UNK
     Dates: start: 20100509
  8. CIPRO [Concomitant]
     Indication: URINARY TRACT INFECTION
     Dosage: UNK
     Dates: start: 20100509

REACTIONS (5)
  - Pulmonary embolism [Recovered/Resolved]
  - Pain in extremity [None]
  - Anxiety [Recovered/Resolved]
  - Deep vein thrombosis [None]
  - Deep vein thrombosis [None]
